FAERS Safety Report 6701459-7 (Version None)
Quarter: 2010Q2

REPORT INFORMATION
  Report Type: 
  Country: None (occurrence: None)
  Receive Date: 20100429
  Receipt Date: 20100416
  Transmission Date: 20101027
  Serious: Yes (Other)
  Sender: FDA-Public Use
  Company Number: CA-JNJFOC-20100405640

PATIENT
  Sex: Female
  Weight: 72 kg

DRUGS (6)
  1. REMICADE [Suspect]
     Indication: CROHN'S DISEASE
     Route: 042
  2. MAXERAN [Concomitant]
  3. IMURAN [Concomitant]
  4. PREDNISONE [Concomitant]
  5. WARFARIN SODIUM [Concomitant]
  6. CIPRO [Concomitant]

REACTIONS (3)
  - IMPAIRED HEALING [None]
  - INCISION SITE COMPLICATION [None]
  - SURGERY [None]
